FAERS Safety Report 6641099-1 (Version None)
Quarter: 2010Q1

REPORT INFORMATION
  Report Type: 
  Country: None (occurrence: None)
  Receive Date: 20100318
  Receipt Date: 20090626
  Transmission Date: 20100710
  Serious: Yes (Other)
  Sender: FDA-Public Use
  Company Number: US-ASTRAZENECA-2009UW17540

PATIENT
  Age: 27089 Day
  Sex: Male

DRUGS (1)
  1. LISINOPRIL [Suspect]
     Route: 048
     Dates: end: 20090324

REACTIONS (2)
  - ANGIOEDEMA [None]
  - HYPERSENSITIVITY [None]
